FAERS Safety Report 5929332-2 (Version None)
Quarter: 2008Q4

REPORT INFORMATION
  Report Type: 
  Country: None (occurrence: None)
  Receive Date: 20081023
  Receipt Date: 20081023
  Transmission Date: 20090506
  Serious: Yes (Hospitalization)
  Sender: FDA-Public Use
  Company Number: None

PATIENT
  Age: 59 Year
  Sex: Male
  Weight: 86.1834 kg

DRUGS (13)
  1. CETUXIMAB [Suspect]
     Indication: PANCREATIC CARCINOMA
     Dosage: 1025MG EVERY 2 WEEKS IV
     Route: 042
     Dates: start: 20081008
  2. OXALIPLATIN [Suspect]
     Indication: PANCREATIC CARCINOMA
     Dosage: 205MG EVERY 2 WEEKS IV
     Route: 042
     Dates: start: 20081008
  3. GEMZAR [Suspect]
     Indication: PANCREATIC CARCINOMA
     Dosage: 2050MG EVERY 2 WEEKS IV
     Route: 042
     Dates: start: 20081008
  4. NEXIUM [Concomitant]
  5. MORPHINE SULFATE INJ [Concomitant]
  6. DILAUDID [Concomitant]
  7. LISINOPRIL [Concomitant]
  8. POLYETH [Concomitant]
  9. GLYCOL [Concomitant]
  10. NOVALOG INSULIN [Concomitant]
  11. LEVAMIR INSULIN [Concomitant]
  12. ODANSETRON [Concomitant]
  13. PROCHLORPERAZINE [Concomitant]

REACTIONS (6)
  - ABDOMINAL PAIN [None]
  - DEHYDRATION [None]
  - NAUSEA [None]
  - NEUTROPENIA [None]
  - PAIN [None]
  - URINARY RETENTION [None]
